FAERS Safety Report 7650867-9 (Version None)
Quarter: 2011Q3

REPORT INFORMATION
  Report Type: 
  Country: None (occurrence: None)
  Receive Date: 20110802
  Receipt Date: 20090716
  Transmission Date: 20111222
  Serious: Yes (Other)
  Sender: FDA-Public Use
  Company Number: US-BAYER-200829608NA

PATIENT
  Sex: Female
  Weight: 48.073 kg

DRUGS (45)
  1. GADOLINIUM IN UNSPECIFIED DRUG [Suspect]
     Dosage: UNK, ONCE
     Dates: start: 19990806, end: 19990806
  2. EPOGEN [Concomitant]
  3. VASOTEC [Concomitant]
  4. COUMADIN [Concomitant]
  5. GADOLINIUM IN UNSPECIFIED DRUG [Suspect]
     Indication: NUCLEAR MAGNETIC RESONANCE IMAGING BRAIN
     Dosage: UNK UNK, ONCE
     Dates: start: 19980624, end: 19980624
  6. METOPROLOL TARTRATE [Concomitant]
  7. ZETIA [Concomitant]
  8. IMDUR [Concomitant]
  9. OSCAL [CALCIUM CARBONATE] [Concomitant]
  10. TEMAZEPAM [Concomitant]
  11. DIPROLENE [Concomitant]
  12. OMNISCAN [Suspect]
     Dosage: UNK, ONCE
     Dates: start: 20030515, end: 20030515
  13. GADOLINIUM IN UNSPECIFIED DRUG [Suspect]
     Dosage: UNK
  14. GADOLINIUM IN UNSPECIFIED DRUG [Suspect]
  15. CELLCEPT [Concomitant]
  16. HYDRALAZINE HCL [Concomitant]
  17. ACETYLSALICYLIC ACID SRT [Concomitant]
  18. FOLIC ACID [Concomitant]
  19. PYRIDOXINE HCL [Concomitant]
  20. LASIX [Concomitant]
  21. BICITRA [Concomitant]
  22. OPTIMARK [Suspect]
     Indication: PRODUCT USED FOR UNKNOWN INDICATION
  23. GADOLINIUM IN UNSPECIFIED DRUG [Suspect]
     Dosage: UNK, ONCE
     Route: 042
     Dates: start: 20080407, end: 20080407
  24. PREDNISONE [Concomitant]
  25. RENAGEL [Concomitant]
  26. COZAAR [Concomitant]
  27. PROHANCE [Suspect]
     Indication: PRODUCT USED FOR UNKNOWN INDICATION
  28. GADOLINIUM IN UNSPECIFIED DRUG [Suspect]
  29. IMURAN [Concomitant]
  30. ACYCLOVIR [Concomitant]
  31. OMNISCAN [Suspect]
     Indication: NUCLEAR MAGNETIC RESONANCE IMAGING
     Dosage: UNK, ONCE
     Dates: start: 20031010, end: 20031010
  32. MULTIHANCE [Suspect]
     Indication: PRODUCT USED FOR UNKNOWN INDICATION
  33. GADOLINIUM IN UNSPECIFIED DRUG [Suspect]
     Indication: NUCLEAR MAGNETIC RESONANCE IMAGING
     Dosage: UNK, ONCE
     Dates: start: 19990209, end: 19990209
  34. TACROLIMUS [Concomitant]
  35. CALCITRIOL [Concomitant]
  36. CLONIDINE [Concomitant]
  37. CYCLOSPORINE [Concomitant]
  38. AMIODARONE HCL [Concomitant]
  39. HYDROCHLOROTHIAZIDE [Concomitant]
  40. POTASSIUM CHLORIDE [Concomitant]
  41. PRILOSEC [Concomitant]
  42. MAGNEVIST [Suspect]
     Indication: NUCLEAR MAGNETIC RESONANCE IMAGING BRAIN
     Dosage: UNK UNK, ONCE
     Route: 042
     Dates: start: 19910512, end: 19910512
  43. OMNISCAN [Suspect]
     Dosage: UNK, ONCE
     Dates: start: 20021021, end: 20021021
  44. GADOLINIUM IN UNSPECIFIED DRUG [Suspect]
     Indication: ANGIOGRAM
     Dosage: UNK, ONCE
     Dates: start: 19980706, end: 19980706
  45. NEPHROCAPS [Concomitant]

REACTIONS (8)
  - RASH [None]
  - MOBILITY DECREASED [None]
  - ASTHENIA [None]
  - NEPHROGENIC SYSTEMIC FIBROSIS [None]
  - MENTAL DISORDER [None]
  - PAIN [None]
  - EMOTIONAL DISTRESS [None]
  - ANHEDONIA [None]
